FAERS Safety Report 9571582 (Version 1)
Quarter: 2013Q4

REPORT INFORMATION
  Report Type: Spontaneous
  Country: FR (occurrence: FR)
  Receive Date: 20131001
  Receipt Date: 20131001
  Transmission Date: 20140711
  Serious: Yes (Hospitalization)
  Sender: FDA-Public Use
  Company Number: FR-009507513-1309FRA010433

PATIENT
  Sex: Male

DRUGS (7)
  1. INEGY [Suspect]
     Indication: HYPERCHOLESTEROLAEMIA
     Route: 048
  2. PLAVIX [Suspect]
     Dosage: UNK
     Route: 048
     Dates: start: 200603
  3. RASILEZ [Suspect]
     Route: 048
  4. MECIR [Suspect]
     Route: 048
  5. NAFRONYL OXALATE [Suspect]
     Route: 048
  6. INEXIUM [Suspect]
     Route: 048
  7. ZANIDIP [Suspect]
     Dosage: UNK
     Route: 048
     Dates: start: 200708

REACTIONS (1)
  - Toxic skin eruption [Unknown]
